FAERS Safety Report 5400050-2 (Version None)
Quarter: 2007Q3

REPORT INFORMATION
  Report Type: 
  Country: None (occurrence: None)
  Receive Date: 20070726
  Receipt Date: 20070726
  Transmission Date: 20080115
  Serious: No
  Sender: FDA-Public Use
  Company Number: None

PATIENT
  Age: 56 Year
  Sex: Male
  Weight: 77.1115 kg

DRUGS (1)
  1. GEODON [Suspect]
     Indication: HALLUCINATION, AUDITORY
     Dosage: 60 MG  2XDAILY

REACTIONS (3)
  - HYPOAESTHESIA [None]
  - MOTOR DYSFUNCTION [None]
  - PARAESTHESIA [None]
